FAERS Safety Report 21813394 (Version 1)
Quarter: 2023Q1

REPORT INFORMATION
  Report Type: Spontaneous
  Country: CN (occurrence: CN)
  Receive Date: 20230103
  Receipt Date: 20230103
  Transmission Date: 20230418
  Serious: Yes (Other)
  Sender: FDA-Public Use
  Company Number: None

PATIENT
  Age: 34 Year
  Sex: Male
  Weight: 75 kg

DRUGS (1)
  1. MANNITOL [Suspect]
     Active Substance: MANNITOL
     Indication: Reduction of increased intracranial pressure
     Dosage: 200 ML, ONCE DAILY
     Route: 041
     Dates: start: 20221216, end: 20221219

REACTIONS (2)
  - Diabetes insipidus [Recovering/Resolving]
  - Urine output increased [Recovering/Resolving]

NARRATIVE: CASE EVENT DATE: 20221219
